FAERS Safety Report 6621921-5 (Version None)
Quarter: 2010Q1

REPORT INFORMATION
  Report Type: 
  Country: None (occurrence: None)
  Receive Date: 20100223
  Receipt Date: 20091231
  Transmission Date: 20100710
  Serious: No
  Sender: FDA-Public Use
  Company Number: 003789

PATIENT
  Sex: Male

DRUGS (1)
  1. CIMZIA [Suspect]
     Dosage: 400 MG EVERY 2-WEEKS SUBCUTANEOUS
     Route: 058
     Dates: start: 20090320

REACTIONS (2)
  - ABDOMINAL PAIN UPPER [None]
  - FISTULA [None]
